FAERS Safety Report 20845879 (Version 4)
Quarter: 2022Q2

REPORT INFORMATION
  Report Type: Report from Study
  Country: CN (occurrence: CN)
  Receive Date: 20220518
  Receipt Date: 20220617
  Transmission Date: 20220720
  Serious: Yes (Life-Threatening, Hospitalization)
  Sender: FDA-Public Use
  Company Number: CN-PFIZER INC-202200714111

PATIENT
  Age: 41 Year
  Sex: Female
  Weight: 73.5 kg

DRUGS (6)
  1. CYTARABINE [Suspect]
     Active Substance: CYTARABINE
     Dosage: 1000 MG/M2, 1X/DAY, REGIMEN #1
     Route: 041
     Dates: start: 20220421, end: 20220425
  2. INVESTIGATIONAL PRODUCT [Suspect]
     Active Substance: INVESTIGATIONAL PRODUCT
     Indication: Acute myeloid leukaemia
     Dosage: UPROLESELAN/PLACEBO, REGIMEN #1
     Dates: start: 20220420, end: 20220420
  3. INVESTIGATIONAL PRODUCT [Suspect]
     Active Substance: INVESTIGATIONAL PRODUCT
     Dosage: UPROLESELAN/PLACEBO, REGIMEN #2
     Dates: start: 20220421, end: 20220425
  4. INVESTIGATIONAL PRODUCT [Suspect]
     Active Substance: INVESTIGATIONAL PRODUCT
     Dosage: UPROLESELAN/PLACEBO, REGIMEN #3
     Dates: start: 20220426, end: 20220427
  5. MITOXANTRONE [Suspect]
     Active Substance: MITOXANTRONE HYDROCHLORIDE
     Indication: Acute myeloid leukaemia
     Dosage: 6 MG/M2, 1X/DAY, REGIMEN #1, 25/12.5 MILLIGRAM PER MILLILITRE
     Route: 041
     Dates: start: 20220421, end: 20220425
  6. ETOPOSIDE [Suspect]
     Active Substance: ETOPOSIDE
     Indication: Acute myeloid leukaemia
     Dosage: 100 MG/M2, 1X/DAY, REGIMEN #1, 0.1/5 GRAM PER MILLILITRE
     Route: 041
     Dates: start: 20220421, end: 20220423

REACTIONS (1)
  - Myelosuppression [Recovering/Resolving]

NARRATIVE: CASE EVENT DATE: 20220424
